FAERS Safety Report 20730759 (Version 1)
Quarter: 2022Q2

REPORT INFORMATION
  Report Type: Spontaneous
  Country: US (occurrence: US)
  Receive Date: 20220420
  Receipt Date: 20220420
  Transmission Date: 20220721
  Serious: No
  Sender: FDA-Public Use
  Company Number: US-ASTELLAS-2021US035145

PATIENT
  Age: 48 Year
  Sex: Female

DRUGS (5)
  1. LEXISCAN [Suspect]
     Active Substance: REGADENOSON
     Indication: Scan myocardial perfusion
     Dosage: 0.4 MG, UNKNOWN FREQ.
     Route: 042
     Dates: start: 20210916, end: 20210916
  2. LEXISCAN [Suspect]
     Active Substance: REGADENOSON
     Indication: Scan myocardial perfusion
     Dosage: 0.4 MG, UNKNOWN FREQ.
     Route: 042
     Dates: start: 20210916, end: 20210916
  3. LEXISCAN [Suspect]
     Active Substance: REGADENOSON
     Indication: Scan myocardial perfusion
     Dosage: 0.4 MG, UNKNOWN FREQ.
     Route: 042
     Dates: start: 20210916, end: 20210916
  4. LEXISCAN [Suspect]
     Active Substance: REGADENOSON
     Indication: Scan myocardial perfusion
     Dosage: 0.4 MG, UNKNOWN FREQ.
     Route: 042
     Dates: start: 20210916, end: 20210916
  5. AMINOPHYLLINE [Suspect]
     Active Substance: AMINOPHYLLINE
     Indication: Product used for unknown indication
     Route: 042
     Dates: start: 20210916

REACTIONS (5)
  - Tongue disorder [Recovered/Resolved]
  - Paraesthesia oral [Recovered/Resolved]
  - Nausea [Recovered/Resolved]
  - Anxiety [Unknown]
  - Panic attack [Unknown]

NARRATIVE: CASE EVENT DATE: 20210916
